FAERS Safety Report 17751684 (Version 1)
Quarter: 2020Q2

REPORT INFORMATION
  Report Type: Spontaneous
  Country: FR (occurrence: FR)
  Receive Date: 20200506
  Receipt Date: 20200506
  Transmission Date: 20200714
  Serious: Yes (Other)
  Sender: FDA-Public Use
  Company Number: FR-SHIRE-FR202015114

PATIENT

DRUGS (1)
  1. FEIBA NF [Suspect]
     Active Substance: ANTI-INHIBITOR COAGULANT COMPLEX
     Indication: ACQUIRED HAEMOPHILIA
     Dosage: 4500 INTERNATIONAL UNIT, 2X/DAY:BID
     Route: 065

REACTIONS (4)
  - Epistaxis [Unknown]
  - Pruritus [Unknown]
  - Paraesthesia [Unknown]
  - Haemorrhage [Unknown]
